FAERS Safety Report 4499370-8 (Version None)
Quarter: 2004Q3

REPORT INFORMATION
  Report Type: 
  Country: None (occurrence: None)
  Receive Date: 20040928
  Receipt Date: 20040806
  Transmission Date: 20050211
  Serious: No
  Sender: FDA-Public Use
  Company Number: 04P-163-0269490-00

PATIENT
  Sex: Female
  Weight: 74.8435 kg

DRUGS (12)
  1. HUMIRA [Suspect]
     Indication: RHEUMATOID ARTHRITIS
     Dosage: 40 MG, 1 IN 2 WK, SUBCUTANEOUS
     Route: 058
     Dates: start: 20040101
  2. ASPIRIN [Concomitant]
  3. PERGOLIDE MESYLATE [Concomitant]
  4. FUROSEMIDE [Concomitant]
  5. LANSOPRAZOLE [Concomitant]
  6. SPIRONOLACTONE [Concomitant]
  7. POTASSIUM [Concomitant]
  8. LEVOTHYROXINE SODIUM [Concomitant]
  9. AMIODARONE HYDROCHLORIDE [Concomitant]
  10. HYDROXYCHLOROQUINE PHOSPHATE [Concomitant]
  11. CELECOXIB [Concomitant]
  12. RAMIPRIL [Concomitant]

REACTIONS (2)
  - ORTHOSTATIC HYPOTENSION [None]
  - SKIN BLEEDING [None]
